FAERS Safety Report 19943243 (Version 5)
Quarter: 2022Q3

REPORT INFORMATION
  Report Type: Spontaneous
  Country: JP (occurrence: JP)
  Receive Date: 20211012
  Receipt Date: 20220714
  Transmission Date: 20221027
  Serious: Yes (Other)
  Sender: FDA-Public Use
  Company Number: JP-GSKNCCC-CASE-01324520_AE-50372

PATIENT

DRUGS (4)
  1. FLUTICASONE FUROATE\VILANTEROL TRIFENATATE [Suspect]
     Active Substance: FLUTICASONE FUROATE\VILANTEROL TRIFENATATE
     Dosage: 200 ?G, QD
     Route: 055
     Dates: start: 20200521
  2. BILANOA TABLET [Concomitant]
     Indication: Rhinitis allergic
     Dosage: 20 MG, AFTER DINNER
     Route: 048
     Dates: start: 20210308
  3. RESPLEN TABLETS [Concomitant]
     Indication: Cough
     Dosage: UNK, TID, ONLY WHEN COUGH OCCURRED
     Route: 048
     Dates: start: 20200326
  4. ALESION OPHTHALMIC SOLUTION 0.05% [Concomitant]
     Indication: Conjunctivitis allergic
     Dosage: UNK, TWO OR THREE TIMES DAILY
     Route: 047
     Dates: start: 20210206

REACTIONS (2)
  - Oesophageal candidiasis [Unknown]
  - Feeling abnormal [Unknown]

NARRATIVE: CASE EVENT DATE: 20211008
